FAERS Safety Report 8178433-X (Version None)
Quarter: 2012Q1

REPORT INFORMATION
  Report Type: 
  Country: None (occurrence: None)
  Receive Date: 20120301
  Receipt Date: 20120227
  Transmission Date: 20120608
  Serious: No
  Sender: FDA-Public Use
  Company Number: US-PFIZER INC-2012051648

PATIENT
  Age: 48 Year
  Sex: Female
  Weight: 58.957 kg

DRUGS (6)
  1. GEODON [Suspect]
     Indication: ANXIETY
     Dosage: 20 MG, 2X/DAY
     Route: 048
     Dates: start: 20120227, end: 20120227
  2. TAMOXIFEN [Concomitant]
     Dosage: UNK
  3. KLONOPIN [Concomitant]
     Dosage: UNK
  4. LAMICTAL [Concomitant]
     Dosage: UNK
  5. ACETAMINOPHEN [Concomitant]
     Dosage: UNK
  6. NEURONTIN [Concomitant]
     Dosage: UNK

REACTIONS (1)
  - TINNITUS [None]
